FAERS Safety Report 15291608 (Version 1)
Quarter: 2018Q3

REPORT INFORMATION
  Report Type: Spontaneous
  Country: IT (occurrence: IT)
  Receive Date: 20180817
  Receipt Date: 20180817
  Transmission Date: 20181010
  Serious: Yes (Death, Other)
  Sender: FDA-Public Use
  Company Number: PHHY2018IT075332

PATIENT
  Age: 61 Year
  Sex: Male

DRUGS (2)
  1. ETANERCEPT [Suspect]
     Active Substance: ETANERCEPT
     Dosage: 50 MG, QW
     Route: 065
  2. ETANERCEPT [Suspect]
     Active Substance: ETANERCEPT
     Indication: PSORIATIC ARTHROPATHY
     Dosage: 25 MG, QW2
     Route: 065

REACTIONS (4)
  - Thrombosis [Fatal]
  - Psoriatic arthropathy [Recovering/Resolving]
  - Hepatocellular carcinoma [Fatal]
  - Hepatic function abnormal [Fatal]
